FAERS Safety Report 18674984 (Version 1)
Quarter: 2020Q4

REPORT INFORMATION
  Report Type: Spontaneous
  Country: US (occurrence: US)
  Receive Date: 20201228
  Receipt Date: 20201228
  Transmission Date: 20210114
  Serious: Yes (Congenital Anomaly)
  Sender: FDA-Public Use
  Company Number: None

PATIENT
  Age: 28 Year
  Sex: Female
  Weight: 59 kg

DRUGS (8)
  1. ELEXACAFTOR/TEZACAFTOR/IVACAFTOR AND IVACAFTOR [Suspect]
     Active Substance: ELEXACAFTOR\IVACAFTOR\TEZACAFTOR
     Indication: CYSTIC FIBROSIS
     Route: 048
  2. INHALED HYPERTONIC SALINE [Concomitant]
  3. PULMOZYME [Concomitant]
     Active Substance: DORNASE ALFA
  4. FLONASE [Concomitant]
     Active Substance: FLUTICASONE PROPIONATE
  5. PRENATAL VITAMIN [Concomitant]
     Active Substance: VITAMINS
  6. QVAR REDIHALER [Concomitant]
     Active Substance: BECLOMETHASONE DIPROPIONATE
  7. ALBUTEROL. [Concomitant]
     Active Substance: ALBUTEROL
  8. PANCREAZE [Concomitant]
     Active Substance: PANCRELIPASE AMYLASE\PANCRELIPASE LIPASE\PANCRELIPASE PROTEASE

REACTIONS (8)
  - Pregnancy [None]
  - Exposure during pregnancy [None]
  - Pulmonary congestion [None]
  - Therapy interrupted [None]
  - Caesarean section [None]
  - Chest discomfort [None]
  - Foetal exposure during pregnancy [None]
  - Anomaly of external ear congenital [None]

NARRATIVE: CASE EVENT DATE: 20200919
